FAERS Safety Report 20448102 (Version 1)
Quarter: 2022Q1

REPORT INFORMATION
  Report Type: Spontaneous
  Country: US (occurrence: US)
  Receive Date: 20220209
  Receipt Date: 20220209
  Transmission Date: 20220423
  Serious: No
  Sender: FDA-Public Use
  Company Number: US-009507513-2112USA006059

PATIENT
  Age: 73 Year
  Sex: Male

DRUGS (5)
  1. JANUVIA [Suspect]
     Active Substance: SITAGLIPTIN PHOSPHATE
     Indication: Diabetes mellitus
     Dosage: 100 MILLIGRAM, TABLET TAKEN ONCE DAILY
     Route: 048
     Dates: start: 2020, end: 202112
  2. ELIQUIS [Concomitant]
     Active Substance: APIXABAN
  3. PRASUGREL [Concomitant]
     Active Substance: PRASUGREL
  4. METOPROLOL [Concomitant]
     Active Substance: METOPROLOL
  5. HYDROXYZINE [Concomitant]
     Active Substance: HYDROXYZINE HYDROCHLORIDE

REACTIONS (2)
  - Blood glucose increased [Not Recovered/Not Resolved]
  - Product dose omission issue [Not Recovered/Not Resolved]

NARRATIVE: CASE EVENT DATE: 20211201
